FAERS Safety Report 19811456 (Version 1)
Quarter: 2021Q3

REPORT INFORMATION
  Report Type: Spontaneous
  Country: AR (occurrence: AR)
  Receive Date: 20210910
  Receipt Date: 20210910
  Transmission Date: 20211014
  Serious: Yes (Other)
  Sender: FDA-Public Use
  Company Number: AR-AMGEN-ARGSP2021086933

PATIENT
  Age: 49 Year
  Sex: Female

DRUGS (6)
  1. SILIDRAL UNO [Concomitant]
     Dosage: UNK
  2. STEROGYL [COLECALCIFEROL] [Concomitant]
     Dosage: UNK
  3. ENBREL [Suspect]
     Active Substance: ETANERCEPT
     Indication: RHEUMATOID ARTHRITIS
     Dosage: 25 MG, EVERY 4 DAYS
     Route: 065
     Dates: start: 20161201
  4. ARTRAIT [METHOTREXATE] [Concomitant]
     Active Substance: METHOTREXATE SODIUM
     Dosage: UNK
  5. ENBREL [Suspect]
     Active Substance: ETANERCEPT
     Dosage: 25 MG, EVERY 3 DAYS
     Route: 065
     Dates: start: 20161201
  6. ACIFOL [FOLIC ACID] [Concomitant]
     Dosage: UNK

REACTIONS (10)
  - Spinal pain [Not Recovered/Not Resolved]
  - Product storage error [Not Recovered/Not Resolved]
  - Arthralgia [Not Recovered/Not Resolved]
  - Bone pain [Recovered/Resolved]
  - Poor quality product administered [Not Recovered/Not Resolved]
  - Rheumatoid arthritis [Not Recovered/Not Resolved]
  - Visual impairment [Not Recovered/Not Resolved]
  - Neck pain [Not Recovered/Not Resolved]
  - Back pain [Not Recovered/Not Resolved]
  - Off label use [Not Recovered/Not Resolved]

NARRATIVE: CASE EVENT DATE: 20161201
